FAERS Safety Report 9225232 (Version 1)
Quarter: 2013Q2

REPORT INFORMATION
  Report Type: Spontaneous
  Country: US (occurrence: US)
  Receive Date: 20130411
  Receipt Date: 20130411
  Transmission Date: 20140414
  Serious: Yes (Other)
  Sender: FDA-Public Use
  Company Number: PHEH2013US008204

PATIENT
  Sex: Male

DRUGS (1)
  1. TOBI [Suspect]
     Indication: PNEUMONIA PSEUDOMONAS AERUGINOSA
     Dosage: UNK UKN, BID
     Dates: start: 20130315

REACTIONS (2)
  - Pneumonia [Unknown]
  - Neoplasm malignant [Unknown]
